FAERS Safety Report 9813046 (Version 3)
Quarter: 2014Q1

REPORT INFORMATION
  Report Type: Spontaneous
  Country: FR (occurrence: FR)
  Receive Date: 20140113
  Receipt Date: 20140305
  Transmission Date: 20141002
  Serious: Yes (Other)
  Sender: FDA-Public Use
  Company Number: FR-ABBVIE-14P-056-1188667-00

PATIENT
  Age: 68 Year
  Sex: Female

DRUGS (10)
  1. TARKA [Suspect]
     Indication: HYPERTENSION
     Route: 048
     Dates: start: 20130903, end: 20131018
  2. INIPOMP [Concomitant]
     Indication: PRODUCT USED FOR UNKNOWN INDICATION
     Route: 048
  3. AERIUS [Concomitant]
     Indication: PRODUCT USED FOR UNKNOWN INDICATION
     Route: 048
  4. UVEDOSE [Concomitant]
     Indication: PRODUCT USED FOR UNKNOWN INDICATION
     Dosage: 1 VIAL EVERY THREE MONTHS
  5. INFLUENZIUM 15 CH [Concomitant]
     Indication: PRODUCT USED FOR UNKNOWN INDICATION
  6. YERSUN SERUM 15 CH [Concomitant]
     Indication: PRODUCT USED FOR UNKNOWN INDICATION
  7. PASSIFLORA [Concomitant]
     Indication: PRODUCT USED FOR UNKNOWN INDICATION
  8. POUMON HISTAMINE 15 CH [Concomitant]
     Indication: PRODUCT USED FOR UNKNOWN INDICATION
  9. ECHINACEA [Concomitant]
     Indication: PRODUCT USED FOR UNKNOWN INDICATION
  10. SOLIDAGO [Concomitant]
     Indication: PRODUCT USED FOR UNKNOWN INDICATION

REACTIONS (2)
  - Hepatitis [Recovered/Resolved]
  - Pruritus [Unknown]
